FAERS Safety Report 8594268-8 (Version None)
Quarter: 2012Q3

REPORT INFORMATION
  Report Type: 
  Country: None (occurrence: None)
  Receive Date: 20120815
  Receipt Date: 20120808
  Transmission Date: 20120928
  Serious: Yes (Hospitalization)
  Sender: FDA-Public Use
  Company Number: JP-009507513-1208JPN004861

PATIENT

DRUGS (15)
  1. PEG-INTRON [Suspect]
     Dosage: 60 MCG/BODY/WEEK
     Route: 058
     Dates: start: 20120718
  2. REBETOL [Suspect]
     Dosage: 400 MG, DAILY
     Route: 048
     Dates: start: 20120620
  3. PEG-INTRON [Suspect]
     Dosage: 40 MCG/BODY/WEEK
     Route: 058
     Dates: start: 20120612, end: 20120702
  4. REBETOL [Suspect]
     Indication: HEPATITIS C
     Dosage: 600 MG, DAILY
     Route: 048
     Dates: start: 20120605, end: 20120619
  5. TELAVIC [Suspect]
     Dosage: 500 MG, DAILY
     Route: 048
     Dates: start: 20120620
  6. MARZULENE [Concomitant]
     Indication: GASTRITIS
     Dosage: 1.5 G, DAILY
     Route: 048
  7. RABEPRAZOLE SODIUM [Concomitant]
     Indication: GASTRIC ULCER
     Dosage: 20 MG, DAILY
     Route: 048
  8. POLARAMINE POWDER [Concomitant]
     Indication: RASH
     Dosage: 4 MG, DAILY
     Route: 048
  9. TELAVIC [Suspect]
     Dosage: 0 MG, DAILY
     Route: 048
     Dates: start: 20120612, end: 20120619
  10. PEG-INTRON [Suspect]
     Dosage: 50 MCG/BODY/WEEK
     Route: 058
     Dates: start: 20120703, end: 20120717
  11. REZALTAS [Concomitant]
     Indication: HYPERTENSION
     Dosage: 1 DF, QD
     Route: 048
  12. ALLEGRA [Concomitant]
     Indication: PRURITUS
     Dosage: 120 MG, DAILY
     Route: 048
  13. JANUVIA [Concomitant]
     Indication: DIABETES MELLITUS
     Dosage: 50 MG, DAILY
     Route: 048
  14. PEG-INTRON [Suspect]
     Indication: HEPATITIS C
     Dosage: 80 MICROGRAM, QW
     Route: 058
     Dates: start: 20120605
  15. TELAVIC [Suspect]
     Indication: HEPATITIS C
     Dosage: 2250 MG, DAILY
     Route: 048
     Dates: start: 20120605, end: 20120612

REACTIONS (1)
  - TOXIC SKIN ERUPTION [None]
